FAERS Safety Report 16474477 (Version 1)
Quarter: 2019Q3

REPORT INFORMATION
  Report Type: Spontaneous
  Country: US (occurrence: US)
  Receive Date: 20190624
  Receipt Date: 20190624
  Transmission Date: 20191004
  Serious: Yes (Other)
  Sender: FDA-Public Use
  Company Number: None

PATIENT
  Age: 81 Year
  Sex: Male
  Weight: 93.15 kg

DRUGS (6)
  1. HYDROCODONE-APAP [Concomitant]
     Active Substance: ACETAMINOPHEN\HYDROCODONE
  2. ZOFRAN [Concomitant]
     Active Substance: ONDANSETRON HYDROCHLORIDE
  3. ATORVASTATIN [Concomitant]
     Active Substance: ATORVASTATIN
  4. ERLEADA [Suspect]
     Active Substance: APALUTAMIDE
     Indication: PROSTATE CANCER
     Route: 048
     Dates: start: 20190521
  5. TAMSULOSIN [Concomitant]
     Active Substance: TAMSULOSIN
  6. COMBIGAN [Concomitant]
     Active Substance: BRIMONIDINE TARTRATE\TIMOLOL MALEATE

REACTIONS (1)
  - Disease progression [None]
